FAERS Safety Report 26137561 (Version 1)
Quarter: 2025Q4

REPORT INFORMATION
  Report Type: Spontaneous
  Country: GB (occurrence: GB)
  Receive Date: 20251209
  Receipt Date: 20251209
  Transmission Date: 20260118
  Serious: Yes (Life-Threatening, Other)
  Sender: JOHNSON AND JOHNSON
  Company Number: None

PATIENT
  Age: 71 Year
  Sex: Female

DRUGS (16)
  1. ITRACONAZOLE [Suspect]
     Active Substance: ITRACONAZOLE
     Indication: Product used for unknown indication
  2. LEVOTHYROXINE SODIUM [Concomitant]
     Active Substance: LEVOTHYROXINE SODIUM
     Indication: Product used for unknown indication
     Dosage: 25 MICROGRAM
  3. LEVOTHYROXINE SODIUM [Concomitant]
     Active Substance: LEVOTHYROXINE SODIUM
     Dosage: 50 MICROGRAM
  4. OMEPRAZOLE [Concomitant]
     Active Substance: OMEPRAZOLE
     Indication: Product used for unknown indication
  5. Prednisolone 5 mg tablets [Concomitant]
     Indication: Product used for unknown indication
  6. FAMOTIDINE [Concomitant]
     Active Substance: FAMOTIDINE
     Indication: Product used for unknown indication
  7. Trelegy Ellipta 92 / 55 / 22 micrograms / dose dry powder inhaler [Concomitant]
     Indication: Product used for unknown indication
  8. SERTRALINE HYDROCHLORIDE [Concomitant]
     Active Substance: SERTRALINE HYDROCHLORIDE
     Indication: Product used for unknown indication
  9. Doxycycline 100 mg capsules [Concomitant]
     Indication: Product used for unknown indication
  10. Senna 7.5 mg tablets [Concomitant]
     Indication: Product used for unknown indication
  11. ATORVASTATIN [Concomitant]
     Active Substance: ATORVASTATIN
     Indication: Product used for unknown indication
  12. Evacal-D3 1500 mg / 400 unit chewable tablets [Concomitant]
     Indication: Product used for unknown indication
  13. Aspirin 75 mg dispersible tablets [Concomitant]
     Indication: Product used for unknown indication
  14. Acetylcysteine 600 mg tablets [Concomitant]
     Indication: Product used for unknown indication
  15. Salamol 100 micrograms / dose Easi-Breathe inhaler [Concomitant]
     Indication: Product used for unknown indication
  16. Saline 0.9% nebuliser liquid 2.5 ml Steri-Neb unit dose ampoules [Concomitant]
     Indication: Product used for unknown indication

REACTIONS (1)
  - Electrocardiogram QT prolonged [Recovered/Resolved]
